FAERS Safety Report 8517183 (Version 2)
Quarter: 2013Q2

REPORT INFORMATION
  Report Type: Spontaneous
  Country: US (occurrence: US)
  Receive Date: 20120417
  Receipt Date: 20130502
  Transmission Date: 20140414
  Serious: No
  Sender: FDA-Public Use
  Company Number: US-ASTRAZENECA-2011SE16457

PATIENT
  Age: 65 Year
  Sex: Female

DRUGS (6)
  1. NEXIUM [Suspect]
     Route: 048
  2. OMEPRAZOLE [Suspect]
     Indication: GASTROOESOPHAGEAL REFLUX DISEASE
     Route: 048
  3. WELLBUTRIN [Concomitant]
  4. CELEXA [Concomitant]
  5. ZOCOR [Concomitant]
  6. LYRICA [Concomitant]

REACTIONS (8)
  - Gastrooesophageal reflux disease [Unknown]
  - Chest pain [Unknown]
  - Regurgitation [Unknown]
  - Back disorder [Unknown]
  - Pain [Unknown]
  - Nasopharyngitis [Unknown]
  - Drug dose omission [Unknown]
  - Drug ineffective [Unknown]
